FAERS Safety Report 14763342 (Version 1)
Quarter: 2018Q2

REPORT INFORMATION
  Report Type: Spontaneous
  Country: AU (occurrence: AU)
  Receive Date: 20180416
  Receipt Date: 20180416
  Transmission Date: 20180711
  Serious: Yes (Other)
  Sender: FDA-Public Use
  Company Number: PHHY2018AU060995

PATIENT
  Age: 35 Year
  Sex: Female

DRUGS (8)
  1. MEROPENEM. [Suspect]
     Active Substance: MEROPENEM
     Indication: BURKHOLDERIA PSEUDOMALLEI INFECTION
     Dosage: 1 G, Q8H
     Route: 042
  2. NIFEDIPINE. [Suspect]
     Active Substance: NIFEDIPINE
     Indication: UTERINE CONTRACTIONS DURING PREGNANCY
     Route: 065
  3. CEFTAZIDIME. [Suspect]
     Active Substance: CEFTAZIDIME
     Indication: BURKHOLDERIA PSEUDOMALLEI INFECTION
     Dosage: 6 G, QD
     Route: 041
  4. CEFTAZIDIME. [Suspect]
     Active Substance: CEFTAZIDIME
     Indication: PNEUMONIA
  5. MEROPENEM. [Suspect]
     Active Substance: MEROPENEM
     Indication: PNEUMONIA
  6. AMOXICILLIN + CLAVULANATE POTASSIUM [Suspect]
     Active Substance: AMOXICILLIN\CLAVULANATE POTASSIUM
     Indication: BURKHOLDERIA PSEUDOMALLEI INFECTION
     Dosage: 1 DF (AMOXICILLIN 875 MG/ CLAVULANIC ACID 125 MG), BID
     Route: 048
  7. MAGNESIUM [Suspect]
     Active Substance: MAGNESIUM
     Indication: PROPHYLAXIS
     Route: 065
  8. AMOXICILLIN + CLAVULANATE POTASSIUM [Suspect]
     Active Substance: AMOXICILLIN\CLAVULANATE POTASSIUM
     Indication: PNEUMONIA

REACTIONS (3)
  - Premature labour [Unknown]
  - Premature delivery [Unknown]
  - Maternal exposure during pregnancy [Unknown]
